FAERS Safety Report 5776859-2 (Version None)
Quarter: 2008Q2

REPORT INFORMATION
  Report Type: 
  Country: None (occurrence: None)
  Receive Date: 20080616
  Receipt Date: 20080602
  Transmission Date: 20081010
  Serious: Yes (Other)
  Sender: FDA-Public Use
  Company Number: MC200800258

PATIENT

DRUGS (1)
  1. ANGIOMAX, ANGIOMX(BIVALIRUDIN) INJECTION [Suspect]
     Indication: DRUG USE FOR UNKNOWN INDICATION

REACTIONS (2)
  - INFUSION SITE EXTRAVASATION [None]
  - INJECTION SITE SWELLING [None]
